FAERS Safety Report 18701833 (Version 3)
Quarter: 2021Q1

REPORT INFORMATION
  Report Type: Report from Study
  Country: US (occurrence: US)
  Receive Date: 20210105
  Receipt Date: 20210325
  Transmission Date: 20210419
  Serious: Yes (Death, Other)
  Sender: FDA-Public Use
  Company Number: US-ACADIA PHARMACEUTICALS INC.-ACA-2020-PIM-004010

PATIENT
  Sex: Male

DRUGS (12)
  1. NUPLAZID [Suspect]
     Active Substance: PIMAVANSERIN TARTRATE
     Indication: PARKINSON^S DISEASE
     Dosage: 34 MILLIGRAM, QD AT BEDTIME
     Route: 048
     Dates: start: 201910
  2. DUOPA [Concomitant]
     Active Substance: CARBIDOPA\LEVODOPA
     Dosage: 4.63MG/20MG PER ML
  3. RAPAFLO [Concomitant]
     Active Substance: SILODOSIN
  4. VESICARE [Concomitant]
     Active Substance: SOLIFENACIN SUCCINATE
  5. AZILECT [Concomitant]
     Active Substance: RASAGILINE MESYLATE
  6. ASPIRIN [ACETYLSALICYLIC ACID] [Concomitant]
     Active Substance: ASPIRIN
  7. ARICEPT [Concomitant]
     Active Substance: DONEPEZIL HYDROCHLORIDE
  8. RYTARY [Concomitant]
     Active Substance: CARBIDOPA\LEVODOPA
  9. MEMANTINE. [Concomitant]
     Active Substance: MEMANTINE
  10. MELATONIN [Concomitant]
     Active Substance: MELATONIN
  11. SINEMET [Concomitant]
     Active Substance: CARBIDOPA\LEVODOPA
  12. MYRBETRIQ [Concomitant]
     Active Substance: MIRABEGRON

REACTIONS (6)
  - Death [Fatal]
  - Fatigue [Unknown]
  - Urinary tract infection [Unknown]
  - Gastrointestinal stoma complication [Recovered/Resolved]
  - Peripheral swelling [Unknown]
  - Oedema [Unknown]
